FAERS Safety Report 11473067 (Version 1)
Quarter: 2015Q3

REPORT INFORMATION
  Report Type: Spontaneous
  Country: US (occurrence: US)
  Receive Date: 20150908
  Receipt Date: 20150908
  Transmission Date: 20151125
  Serious: Yes (Other)
  Sender: FDA-Public Use
  Company Number: US-JAZZ-2014-US-010328

PATIENT
  Age: 58 Year
  Sex: Female

DRUGS (4)
  1. XYREM [Suspect]
     Active Substance: SODIUM OXYBATE
     Dosage: 3.0 G FIRST DOSE
     Route: 048
     Dates: start: 201408
  2. XYREM [Suspect]
     Active Substance: SODIUM OXYBATE
     Dosage: 2.25 G SECOND DOSE
     Route: 048
     Dates: start: 201408
  3. XYREM [Suspect]
     Active Substance: SODIUM OXYBATE
     Dosage: 3 G, BID
     Route: 048
     Dates: start: 2014, end: 2014
  4. XYREM [Suspect]
     Active Substance: SODIUM OXYBATE
     Indication: NARCOLEPSY
     Dosage: 2.25 G, BID
     Route: 048
     Dates: start: 201407, end: 2014

REACTIONS (7)
  - Snoring [Recovering/Resolving]
  - Headache [Recovered/Resolved]
  - Dyspnoea [Recovering/Resolving]
  - Sleep apnoea syndrome [Unknown]
  - Night sweats [Recovered/Resolved]
  - Dry mouth [Unknown]
  - Condition aggravated [Unknown]

NARRATIVE: CASE EVENT DATE: 2007
